FAERS Safety Report 9474990 (Version 2)
Quarter: 2013Q3

REPORT INFORMATION
  Report Type: Report from Study
  Country: CA (occurrence: CA)
  Receive Date: 20130824
  Receipt Date: 20130824
  Transmission Date: 20140515
  Serious: Yes (Other)
  Sender: FDA-Public Use
  Company Number: CA-ROCHE-1046858

PATIENT
  Age: 54 Year
  Sex: Male
  Weight: 59 kg

DRUGS (5)
  1. TOCILIZUMAB [Suspect]
     Indication: RHEUMATOID ARTHRITIS
     Route: 042
     Dates: start: 20110209, end: 20120208
  2. METHOTREXATE [Concomitant]
     Route: 065
  3. FOLIC ACID [Concomitant]
  4. CELEBREX [Concomitant]
  5. TYLENOL [Concomitant]
     Route: 065

REACTIONS (2)
  - Fistula [Not Recovered/Not Resolved]
  - Sinusitis [Not Recovered/Not Resolved]
